FAERS Safety Report 23082275 (Version 3)
Quarter: 2023Q4

REPORT INFORMATION
  Report Type: Spontaneous
  Country: US (occurrence: US)
  Receive Date: 20231019
  Receipt Date: 20231031
  Transmission Date: 20240110
  Serious: No
  Sender: FDA-Public Use
  Company Number: US-JNJFOC-20231034039

PATIENT
  Age: 76 Year
  Sex: Female

DRUGS (2)
  1. XARELTO [Suspect]
     Active Substance: RIVAROXABAN
     Indication: Atrial fibrillation
     Route: 048
     Dates: start: 20231007
  2. XARELTO [Suspect]
     Active Substance: RIVAROXABAN
     Indication: Cerebrovascular accident prophylaxis

REACTIONS (8)
  - COVID-19 [Unknown]
  - Flatulence [Unknown]
  - Ketosis [Unknown]
  - Pruritus [Unknown]
  - Product label issue [Unknown]
  - Respiratory symptom [Unknown]
  - Diarrhoea [Unknown]
  - Ophthalmic migraine [Unknown]
